FAERS Safety Report 6453329-X (Version None)
Quarter: 2009Q4

REPORT INFORMATION
  Report Type: 
  Country: None (occurrence: None)
  Receive Date: 20091124
  Receipt Date: 20091111
  Transmission Date: 20100525
  Serious: Yes (Other)
  Sender: FDA-Public Use
  Company Number: ES-ELI_LILLY_AND_COMPANY-ES200911003400

PATIENT
  Age: 61 Year
  Sex: Male

DRUGS (4)
  1. CIALIS [Suspect]
     Indication: ERECTILE DYSFUNCTION
     Dosage: UNK, UNKNOWN
  2. COZAAR [Concomitant]
     Indication: ANXIETY
     Dosage: 50 MG, DAILY (1/D)
  3. PULMICORT [Concomitant]
     Indication: HYPERSENSITIVITY
     Dosage: UNK, EACH EVENING
  4. ALPHAGAN [Concomitant]
     Indication: INTRAOCULAR PRESSURE INCREASED
     Dosage: UNK, UNKNOWN
     Route: 047

REACTIONS (1)
  - RETINAL DETACHMENT [None]
